FAERS Safety Report 6826366-0 (Version None)
Quarter: 2010Q3

REPORT INFORMATION
  Report Type: 
  Country: None (occurrence: None)
  Receive Date: 20100709
  Receipt Date: 20100630
  Transmission Date: 20110219
  Serious: Yes (Hospitalization)
  Sender: FDA-Public Use
  Company Number: JP-JNJFOC-20100603627

PATIENT
  Sex: Male
  Weight: 65 kg

DRUGS (6)
  1. REMICADE [Suspect]
     Indication: RHEUMATOID ARTHRITIS
     Dosage: 1 DOSE
     Route: 042
  2. REMICADE [Suspect]
     Dosage: 1 DOSE
     Route: 042
  3. REMICADE [Suspect]
     Dosage: 1 DOSE
     Route: 042
  4. REMICADE [Suspect]
     Dosage: 5 DOSES
     Route: 042
  5. REMICADE [Suspect]
     Dosage: 3 DOSES
     Route: 042
  6. RHEUMATREX [Concomitant]
     Indication: RHEUMATOID ARTHRITIS
     Route: 048

REACTIONS (2)
  - PLEURAL EFFUSION [None]
  - PNEUMONIA [None]
